FAERS Safety Report 4440547-5 (Version None)
Quarter: 2004Q3

REPORT INFORMATION
  Report Type: 
  Country: None (occurrence: None)
  Receive Date: 20040831
  Receipt Date: 20040312
  Transmission Date: 20050211
  Serious: Yes (Hospitalization)
  Sender: FDA-Public Use
  Company Number: US012846

PATIENT
  Age: 44 Year
  Sex: Female

DRUGS (2)
  1. GABITRIL [Suspect]
     Indication: CONVULSION
     Dosage: 4 MG ORAL
     Route: 048
  2. GABITRIL [Suspect]
     Indication: CONVULSION
     Dosage: 8 MG ORAL
     Route: 048

REACTIONS (2)
  - FAECAL INCONTINENCE [None]
  - LOSS OF CONSCIOUSNESS [None]
